FAERS Safety Report 25691540 (Version 1)
Quarter: 2025Q3

REPORT INFORMATION
  Report Type: Spontaneous
  Country: US (occurrence: None)
  Receive Date: 20250811
  Receipt Date: 20250811
  Transmission Date: 20251021
  Serious: Yes (Other)
  Sender: FDA-CTU
  Company Number: None

PATIENT
  Age: 58 Year
  Sex: Female
  Weight: 100.8 kg

DRUGS (3)
  1. PIRTOBRUTINIB [Suspect]
     Active Substance: PIRTOBRUTINIB
     Dosage: FREQUENCY : DAILY;?
     Route: 048
  2. IBRUTINIB [Suspect]
     Active Substance: IBRUTINIB
  3. ZANUBRUTINIB [Suspect]
     Active Substance: ZANUBRUTINIB
     Dates: end: 20250522

REACTIONS (1)
  - Squamous cell carcinoma [None]

NARRATIVE: CASE EVENT DATE: 20150728
